FAERS Safety Report 25042497 (Version 1)
Quarter: 2025Q1

REPORT INFORMATION
  Report Type: Spontaneous
  Country: US (occurrence: US)
  Receive Date: 20250305
  Receipt Date: 20250305
  Transmission Date: 20250408
  Serious: No
  Sender: BAYER HEALTHCARE PHARMACEUTICALS INC.
  Company Number: US-BAYER-2025A026561

PATIENT
  Age: 84 Year
  Sex: Male

DRUGS (6)
  1. NUBEQA [Suspect]
     Active Substance: DAROLUTAMIDE
  2. PANTOPRAZOLE [Concomitant]
     Active Substance: PANTOPRAZOLE
  3. GABAPENTIN [Concomitant]
     Active Substance: GABAPENTIN
  4. ENTRESTO [Concomitant]
     Active Substance: SACUBITRIL\VALSARTAN
  5. LIPITOR [Concomitant]
     Active Substance: ATORVASTATIN CALCIUM
  6. TIZANIDINE [Concomitant]
     Active Substance: TIZANIDINE

REACTIONS (15)
  - Limb injury [Recovered/Resolved]
  - Gait disturbance [Recovered/Resolved]
  - Weight bearing difficulty [Recovered/Resolved]
  - Dyspnoea exertional [None]
  - Sneezing [None]
  - Headache [None]
  - Epistaxis [None]
  - Constipation [None]
  - Pollakiuria [None]
  - Decreased appetite [None]
  - Weight increased [None]
  - Fatigue [None]
  - Asthenia [None]
  - Visual impairment [None]
  - Quality of life decreased [None]

NARRATIVE: CASE EVENT DATE: 20240201
